FAERS Safety Report 19994390 (Version 1)
Quarter: 2021Q4

REPORT INFORMATION
  Report Type: Spontaneous
  Country: US (occurrence: US)
  Receive Date: 20211025
  Receipt Date: 20211025
  Transmission Date: 20220303
  Serious: Yes (Hospitalization)
  Sender: FDA-Public Use
  Company Number: None

PATIENT
  Age: 41 Year
  Sex: Female

DRUGS (6)
  1. VEMLIDY [Suspect]
     Active Substance: TENOFOVIR ALAFENAMIDE FUMARATE
     Indication: Chronic hepatitis B
     Route: 048
     Dates: start: 20210814
  2. CEPHALEXIN [Concomitant]
     Active Substance: CEPHALEXIN
  3. LOSARTAN [Concomitant]
     Active Substance: LOSARTAN
  4. OXYCODONE [Concomitant]
     Active Substance: OXYCODONE
  5. PRAVASTATIN [Concomitant]
     Active Substance: PRAVASTATIN
  6. UNITHROID [Concomitant]
     Active Substance: LEVOTHYROXINE SODIUM

REACTIONS (2)
  - Surgery [None]
  - Therapy interrupted [None]

NARRATIVE: CASE EVENT DATE: 20211023
